FAERS Safety Report 8963891 (Version 2)
Quarter: 2012Q4

REPORT INFORMATION
  Report Type: Report from Study
  Country: GB (occurrence: GB)
  Receive Date: 20121214
  Receipt Date: 20121221
  Transmission Date: 20130627
  Serious: Yes (Death)
  Sender: FDA-Public Use
  Company Number: GB-AMGEN-GBRCT2012008542

PATIENT
  Age: 73 Year
  Sex: Male

DRUGS (2)
  1. ETANERCEPT [Suspect]
     Indication: RHEUMATOID ARTHRITIS
     Dosage: 25 mg, 2x/week
     Dates: start: 20040415, end: 20091215
  2. METHOTREXATE SODIUM [Concomitant]
     Dosage: UNK

REACTIONS (3)
  - Bronchial carcinoma [Fatal]
  - Squamous cell carcinoma [Fatal]
  - Chronic obstructive pulmonary disease [Fatal]
